FAERS Safety Report 10075437 (Version 4)
Quarter: 2016Q1

REPORT INFORMATION
  Report Type: Spontaneous
  Country: US (occurrence: None)
  Receive Date: 20140318
  Receipt Date: 20160114
  Transmission Date: 20160525
  Serious: Yes (Other)
  Sender: FDA-Public Use
  Company Number: ADR-2013-00608

PATIENT
  Sex: Female

DRUGS (1)
  1. LIORESAL [Suspect]
     Active Substance: BACLOFEN
     Indication: MUSCLE SPASTICITY
     Dosage: 40.28 MCG/DAY

REACTIONS (24)
  - Performance status decreased [None]
  - Musculoskeletal stiffness [None]
  - Medical device site injury [None]
  - Asthenia [None]
  - Unevaluable event [None]
  - Epicondylitis [None]
  - Procedural complication [None]
  - Muscle spasms [None]
  - Muscle spasticity [None]
  - Procedural pain [None]
  - Gait disturbance [None]
  - Muscle contracture [None]
  - Paralysis [None]
  - Bursitis [None]
  - Complication associated with device [None]
  - No therapeutic response [None]
  - Peroneal nerve palsy [None]
  - Abasia [None]
  - Dysstasia [None]
  - Medical device discomfort [None]
  - Medical device site mass [None]
  - Nerve injury [None]
  - Muscle contractions involuntary [None]
  - Medical device site pain [None]
